FAERS Safety Report 9256753 (Version 4)
Quarter: 2013Q2

REPORT INFORMATION
  Report Type: Report from Study
  Country: FR (occurrence: FR)
  Receive Date: 20130426
  Receipt Date: 20130524
  Transmission Date: 20140414
  Serious: Yes (Hospitalization)
  Sender: FDA-Public Use
  Company Number: FR-ROCHE-1218255

PATIENT
  Age: 38 Year
  Sex: Female
  Weight: 85 kg

DRUGS (4)
  1. BEVACIZUMAB [Suspect]
     Indication: OVARIAN CANCER
     Dosage: LAST DOSE PRIOR TO SAE 25/APR/2013
     Route: 042
     Dates: start: 20121018
  2. CARBOPLATIN [Suspect]
     Indication: OVARIAN CANCER
     Dosage: LAST DOSE PRIOR TO SAE 10/JAN/2013
     Route: 042
     Dates: start: 20121018
  3. PACLITAXEL [Suspect]
     Indication: OVARIAN CANCER
     Dosage: LAST DOSE PRIOR TO SAE 10/JAN/2013
     Route: 042
     Dates: start: 20121018
  4. PARACETAMOL [Concomitant]
     Indication: ARTHRALGIA
     Dosage: LAST DOSE PRIOR TO SAE 18/APR/2013
     Route: 048
     Dates: start: 20130404

REACTIONS (1)
  - Hypercalcaemia [Recovered/Resolved]
